FAERS Safety Report 5674901-0 (Version None)
Quarter: 2008Q1

REPORT INFORMATION
  Report Type: 
  Country: None (occurrence: None)
  Receive Date: 20080320
  Receipt Date: 20080310
  Transmission Date: 20080703
  Serious: Yes (Other)
  Sender: FDA-Public Use
  Company Number: JP-ROCHE-551314

PATIENT
  Age: 7 Year
  Sex: Male
  Weight: 25 kg

DRUGS (3)
  1. TAMIFLU [Suspect]
     Dosage: DRUG REPORTED AS: TAMIFLU DRY SYRUP 3%
     Route: 048
     Dates: start: 20080220, end: 20080221
  2. ASVERIN [Concomitant]
     Route: 048
     Dates: start: 20080220, end: 20080223
  3. MUCODYNE [Concomitant]
     Route: 048
     Dates: start: 20080220, end: 20080223

REACTIONS (1)
  - ABNORMAL BEHAVIOUR [None]
